FAERS Safety Report 9894849 (Version 1)
Quarter: 2014Q1

REPORT INFORMATION
  Report Type: Spontaneous
  Country: IE (occurrence: IE)
  Receive Date: 20140213
  Receipt Date: 20140213
  Transmission Date: 20141002
  Serious: Yes (Death, Other)
  Sender: FDA-Public Use
  Company Number: IE-ROXANE LABORATORIES, INC.-2014-RO-00210RO

PATIENT
  Age: 29 Year
  Sex: Male

DRUGS (3)
  1. METHADONE [Suspect]
     Indication: PRODUCT USED FOR UNKNOWN INDICATION
  2. ZOPICLONE [Concomitant]
     Indication: PRODUCT USED FOR UNKNOWN INDICATION
  3. AMPHETAMINE [Concomitant]
     Indication: PRODUCT USED FOR UNKNOWN INDICATION

REACTIONS (2)
  - Death [Fatal]
  - Multi-organ disorder [Not Recovered/Not Resolved]
